FAERS Safety Report 8263439-2 (Version None)
Quarter: 2012Q1

REPORT INFORMATION
  Report Type: 
  Country: None (occurrence: None)
  Receive Date: 20120327
  Receipt Date: 20110425
  Transmission Date: 20120608
  Serious: Yes (Other)
  Sender: FDA-Public Use
  Company Number: PHHY2011US35232

PATIENT
  Age: 65 Year
  Sex: Female
  Weight: 77.1 kg

DRUGS (1)
  1. GLEEVEC [Suspect]
     Indication: CHRONIC MYELOID LEUKAEMIA
     Dosage: 400 MG, QD, ORAL
     Dates: start: 20060501

REACTIONS (6)
  - ALOPECIA [None]
  - OEDEMA PERIPHERAL [None]
  - ANAEMIA [None]
  - EYE SWELLING [None]
  - JOINT SWELLING [None]
  - SWELLING FACE [None]
